FAERS Safety Report 9716472 (Version 1)
Quarter: 2013Q4

REPORT INFORMATION
  Report Type: Spontaneous
  Country: JP (occurrence: JP)
  Receive Date: 20131127
  Receipt Date: 20131127
  Transmission Date: 20140711
  Serious: Yes (Death)
  Sender: FDA-Public Use
  Company Number: JP-MYLANLABS-2013S1026140

PATIENT
  Age: 51 Year
  Sex: Male

DRUGS (5)
  1. FLUDARABINE [Suspect]
     Indication: B-CELL LYMPHOMA REFRACTORY
     Route: 065
  2. BENDAMUSTINE [Suspect]
     Indication: B-CELL LYMPHOMA REFRACTORY
     Dosage: 120 MG/M2/DAY ON DAYS 1-2 EVERY 28 DAYS
     Route: 065
     Dates: start: 2011
  3. RITUXIMAB [Concomitant]
     Indication: B-CELL LYMPHOMA REFRACTORY
     Route: 065
  4. MITOXANTRONE [Concomitant]
     Indication: B-CELL LYMPHOMA REFRACTORY
     Route: 065
  5. DEXAMETHASONE [Concomitant]
     Indication: B-CELL LYMPHOMA REFRACTORY
     Route: 065

REACTIONS (6)
  - Cell-mediated immune deficiency [Fatal]
  - Cytomegalovirus infection [Fatal]
  - Histiocytosis haematophagic [Fatal]
  - Multi-organ failure [Fatal]
  - Renal failure acute [Unknown]
  - Cardiac arrest [Unknown]
